FAERS Safety Report 23519739 (Version 2)
Quarter: 2024Q1

REPORT INFORMATION
  Report Type: Spontaneous
  Country: US (occurrence: US)
  Receive Date: 20240213
  Receipt Date: 20240314
  Transmission Date: 20240409
  Serious: No
  Sender: FDA-Public Use
  Company Number: US-ABBVIE-5632926

PATIENT
  Sex: Female

DRUGS (1)
  1. SAVELLA [Suspect]
     Active Substance: MILNACIPRAN HYDROCHLORIDE
     Indication: Pain
     Dosage: TOOK IT AT 2AM AND 2PM?STRENGTH : MILNACIPRAN 12.5MG TAB
     Route: 048
     Dates: start: 20240202, end: 20240204

REACTIONS (9)
  - Migraine [Unknown]
  - Blood pressure increased [Unknown]
  - Nausea [Unknown]
  - Fatigue [Unknown]
  - Disorder of orbit [Unknown]
  - Back pain [Unknown]
  - Drug ineffective [Unknown]
  - Headache [Unknown]
  - Drug hypersensitivity [Unknown]

NARRATIVE: CASE EVENT DATE: 20240101
